FAERS Safety Report 8171610-3 (Version None)
Quarter: 2012Q1

REPORT INFORMATION
  Report Type: 
  Country: None (occurrence: None)
  Receive Date: 20120228
  Receipt Date: 20120215
  Transmission Date: 20120608
  Serious: Yes (Hospitalization)
  Sender: FDA-Public Use
  Company Number: IT-CELGENEUS-083-21880-12011003

PATIENT
  Sex: Male

DRUGS (1)
  1. REVLIMID [Suspect]
     Indication: MYELOMA RECURRENCE
     Dosage: 15 MILLIGRAM
     Route: 048
     Dates: start: 20081203, end: 20110323

REACTIONS (1)
  - PROSTATE CANCER [None]
